FAERS Safety Report 19826838 (Version 1)
Quarter: 2021Q3

REPORT INFORMATION
  Report Type: Spontaneous
  Country: US (occurrence: US)
  Receive Date: 20210914
  Receipt Date: 20210914
  Transmission Date: 20211014
  Serious: No
  Sender: FDA-Public Use
  Company Number: None

PATIENT

DRUGS (1)
  1. REGEN?COV [Suspect]
     Active Substance: CASIRIVIMAB\IMDEVIMAB
     Indication: COVID-19
     Dosage: ?          OTHER FREQUENCY:ONCE;?
     Route: 042
     Dates: start: 20210901, end: 20210901

REACTIONS (4)
  - Product use complaint [None]
  - Incorrect dose administered [None]
  - Product preparation error [None]
  - Drug monitoring procedure not performed [None]

NARRATIVE: CASE EVENT DATE: 20210901
